FAERS Safety Report 5194825-5 (Version None)
Quarter: 2006Q4

REPORT INFORMATION
  Report Type: 
  Country: None (occurrence: None)
  Receive Date: 20061227
  Receipt Date: 20061215
  Transmission Date: 20070319
  Serious: Yes (Death, Hospitalization)
  Sender: FDA-Public Use
  Company Number: FABR-11762

PATIENT
  Age: 50 Year
  Sex: Male
  Weight: 78.4 kg

DRUGS (6)
  1. FABRAZYME [Suspect]
     Indication: FABRY'S DISEASE
     Dosage: 70 MG Q2WKS IV
     Route: 042
     Dates: start: 20030623, end: 20061103
  2. CARDURA [Concomitant]
  3. PLAVIX [Concomitant]
  4. NORVASC [Concomitant]
  5. CELLCEPT [Concomitant]
  6. CELEXA [Concomitant]

REACTIONS (1)
  - CEREBROVASCULAR ACCIDENT [None]
